FAERS Safety Report 9305936 (Version 2)
Quarter: 2013Q2

REPORT INFORMATION
  Report Type: Spontaneous
  Country: ES (occurrence: None)
  Receive Date: 20130516
  Receipt Date: 20130531
  Transmission Date: 20140414
  Serious: Yes (Other)
  Sender: FDA-Public Use
  Company Number: 2013035597

PATIENT
  Age: 79 Year
  Sex: Male

DRUGS (3)
  1. PRIVIGEN (IMMUNE GLOBULIN INTRAVENOUS (HUMAN) 10% LIQUID) [Suspect]
     Indication: IDIOPATHIC THROMBOCYTOPENIC PURPURA
     Route: 042
     Dates: start: 20130310, end: 20130314
  2. POLARAMINE /00043702/ (DEXCHLORPHENIRAMINE MALEATE) [Concomitant]
  3. PARACETAMOL (PARACETAMOL) [Concomitant]

REACTIONS (6)
  - Haemolysis [None]
  - Coombs direct test positive [None]
  - Anti-erythrocyte antibody positive [None]
  - Hyperchromic anaemia [None]
  - Skin discolouration [None]
  - Spherocytic anaemia [None]
